FAERS Safety Report 8432448-2 (Version None)
Quarter: 2012Q2

REPORT INFORMATION
  Report Type: 
  Country: None (occurrence: None)
  Receive Date: 20120613
  Receipt Date: 20120604
  Transmission Date: 20120825
  Serious: Yes (Hospitalization)
  Sender: FDA-Public Use
  Company Number: DE-JNJFOC-20120506581

PATIENT
  Sex: Female
  Weight: 114.2 kg

DRUGS (11)
  1. PALIPERIDONE [Suspect]
     Indication: HALLUCINATION, AUDITORY
     Route: 030
  2. HALDOL [Concomitant]
     Route: 065
  3. LORAZEPAM [Concomitant]
     Route: 065
  4. TRIMIPRAMINE MALEATE [Concomitant]
     Route: 065
  5. BISOHEXAL (BISOPROLOL HEMIFUMARATE) [Concomitant]
     Route: 065
  6. LYRICA [Concomitant]
     Dosage: 50MG - 50MG - 150MG
     Route: 065
  7. CITALOPRAM HYDROBROMIDE [Concomitant]
     Route: 065
  8. PANTOPRAZOLE [Concomitant]
     Route: 065
  9. OLMESARTAN MEDOXOMIL [Concomitant]
     Route: 065
  10. ABILIFY [Concomitant]
     Route: 065
  11. DIPIPERON [Concomitant]
     Route: 065

REACTIONS (2)
  - NODULE [None]
  - DERMAL CYST [None]
